FAERS Safety Report 6169391-8 (Version None)
Quarter: 2009Q2

REPORT INFORMATION
  Report Type: 
  Country: None (occurrence: None)
  Receive Date: 20090428
  Receipt Date: 20090420
  Transmission Date: 20091009
  Serious: Yes (Hospitalization)
  Sender: FDA-Public Use
  Company Number: US-BAYER-200917184NA

PATIENT
  Age: 42 Year
  Sex: Female
  Weight: 55 kg

DRUGS (3)
  1. BETASERON [Suspect]
     Indication: SECONDARY PROGRESSIVE MULTIPLE SCLEROSIS
     Dosage: AS USED: 0.25 ML
     Route: 058
     Dates: start: 20080123, end: 20080201
  2. DITROPAN [Concomitant]
     Indication: URINARY INCONTINENCE
     Dosage: TOTAL DAILY DOSE: 10 MG
     Route: 048
     Dates: start: 20080101
  3. STEROIDS [Concomitant]
     Indication: MULTIPLE SCLEROSIS
     Dates: start: 20080201

REACTIONS (3)
  - INFLUENZA [None]
  - MULTIPLE SCLEROSIS [None]
  - PYREXIA [None]
